FAERS Safety Report 6200104-7 (Version None)
Quarter: 2009Q2

REPORT INFORMATION
  Report Type: 
  Country: None (occurrence: None)
  Receive Date: 20090522
  Receipt Date: 20090515
  Transmission Date: 20091009
  Serious: Yes (Other)
  Sender: FDA-Public Use
  Company Number: PHHY2009TR18659

PATIENT
  Age: 60 Year
  Sex: Male

DRUGS (2)
  1. TEGRETOL [Suspect]
     Indication: NECK INJURY
     Dosage: 200, 1.5 DF, BID (600 MG / DAY)
     Route: 048
  2. TEGRETOL [Suspect]
     Dosage: 400, UNK
     Route: 048

REACTIONS (6)
  - ARRHYTHMIA [None]
  - DIZZINESS [None]
  - DRUG DISPENSING ERROR [None]
  - DRUG PRESCRIBING ERROR [None]
  - INCORRECT DOSE ADMINISTERED [None]
  - SYNCOPE [None]
